FAERS Safety Report 7159503-1 (Version None)
Quarter: 2010Q4

REPORT INFORMATION
  Report Type: 
  Country: None (occurrence: None)
  Receive Date: 20101214
  Receipt Date: 20101130
  Transmission Date: 20110411
  Serious: Yes (Other)
  Sender: FDA-Public Use
  Company Number: US-BAYER-2010-001011

PATIENT
  Sex: Female

DRUGS (3)
  1. ASPIRIN [Suspect]
     Indication: TRANSIENT ISCHAEMIC ATTACK
     Dosage: UNK
     Dates: start: 20040507
  2. PLAVIX [Suspect]
     Indication: TRANSIENT ISCHAEMIC ATTACK
     Dosage: 75 MG, QD
     Dates: start: 20040507
  3. PLAVIX [Suspect]
     Dosage: 75 MG, BIW

REACTIONS (7)
  - ABDOMINAL PAIN [None]
  - CONTUSION [None]
  - HAEMATOCHEZIA [None]
  - HAEMORRHAGE [None]
  - PRURITUS [None]
  - RASH [None]
  - RECTAL HAEMORRHAGE [None]
